FAERS Safety Report 6060732-9 (Version None)
Quarter: 2009Q1

REPORT INFORMATION
  Report Type: 
  Country: None (occurrence: None)
  Receive Date: 20090130
  Receipt Date: 20090130
  Transmission Date: 20090719
  Serious: Yes (Life-Threatening, Hospitalization)
  Sender: FDA-Public Use
  Company Number: None

PATIENT
  Sex: Male
  Weight: 95.2554 kg

DRUGS (4)
  1. CLOZARIL [Suspect]
     Indication: BIPOLAR DISORDER
     Dosage: 500 MG DAILY MOUTH
     Route: 048
     Dates: start: 20080101, end: 20090101
  2. CLOZARIL [Suspect]
     Indication: SCHIZOAFFECTIVE DISORDER
     Dosage: 500 MG DAILY MOUTH
     Route: 048
     Dates: start: 20080101, end: 20090101
  3. HALOPERIDOL DECANOATE [Suspect]
     Indication: BIPOLAR DISORDER
     Dosage: 100 MG/ML VIAL MONTHLY INJECTION
     Dates: start: 20080101, end: 20090101
  4. HALOPERIDOL DECANOATE [Suspect]
     Indication: SCHIZOAFFECTIVE DISORDER
     Dosage: 100 MG/ML VIAL MONTHLY INJECTION
     Dates: start: 20080101, end: 20090101

REACTIONS (3)
  - CRYING [None]
  - EMOTIONAL DISORDER [None]
  - NEPHROPATHY TOXIC [None]
